FAERS Safety Report 8230248-X (Version None)
Quarter: 2012Q1

REPORT INFORMATION
  Report Type: 
  Country: None (occurrence: None)
  Receive Date: 20120321
  Receipt Date: 20120321
  Transmission Date: 20120608
  Serious: Yes (Hospitalization, Disabling)
  Sender: FDA-Public Use
  Company Number: None

PATIENT
  Sex: Female
  Weight: 51.2565 kg

DRUGS (2)
  1. TOPIRAMATE [Suspect]
     Indication: OBSESSIVE-COMPULSIVE DISORDER
     Dosage: 50 MG ONE TAB AT BEDTIME BY MOUTH
     Route: 048
     Dates: start: 20111215, end: 20111225
  2. TOPIRAMATE [Suspect]
     Indication: AFFECTIVE DISORDER
     Dosage: 50 MG ONE TAB AT BEDTIME BY MOUTH
     Route: 048
     Dates: start: 20111215, end: 20111225

REACTIONS (4)
  - ANGLE CLOSURE GLAUCOMA [None]
  - SINUSITIS [None]
  - HEADACHE [None]
  - VISUAL ACUITY REDUCED [None]
